FAERS Safety Report 6946189-1 (Version None)
Quarter: 2010Q3

REPORT INFORMATION
  Report Type: 
  Country: None (occurrence: None)
  Receive Date: 20100819
  Receipt Date: 20100809
  Transmission Date: 20110219
  Serious: Yes (Hospitalization)
  Sender: FDA-Public Use
  Company Number: AUR-APL-2010-01996

PATIENT
  Age: 40 Year
  Sex: Female

DRUGS (6)
  1. SULFAMETHOXAZOLE AND TRIMETHOPRIM [Suspect]
  2. VALACYCLOVIR [Concomitant]
  3. FLUCONAZOLE [Concomitant]
  4. CYCLOSPORINE [Concomitant]
  5. REGULAR INSULIN [Concomitant]
  6. HEPARIN [Concomitant]

REACTIONS (1)
  - ACUTE GENERALISED EXANTHEMATOUS PUSTULOSIS [None]
